FAERS Safety Report 9795034 (Version 1)
Quarter: 2014Q1

REPORT INFORMATION
  Report Type: Spontaneous
  Country: GB (occurrence: GB)
  Receive Date: 20140102
  Receipt Date: 20140102
  Transmission Date: 20141002
  Serious: Yes (Life-Threatening, Hospitalization)
  Sender: FDA-Public Use
  Company Number: GB-ROCHE-1328477

PATIENT
  Age: 47 Year
  Sex: Female
  Weight: 72.1 kg

DRUGS (3)
  1. AVASTIN [Suspect]
     Indication: PRODUCT USED FOR UNKNOWN INDICATION
     Route: 042
     Dates: start: 20131025
  2. CARBOPLATIN [Concomitant]
     Indication: OVARIAN CANCER
  3. PACLITAXEL [Concomitant]
     Indication: OVARIAN CANCER

REACTIONS (1)
  - Ventricular fibrillation [Recovering/Resolving]
